FAERS Safety Report 4553797-4 (Version None)
Quarter: 2005Q1

REPORT INFORMATION
  Report Type: 
  Country: None (occurrence: None)
  Receive Date: 20050114
  Receipt Date: 20050114
  Transmission Date: 20050727
  Serious: Yes (Other)
  Sender: FDA-Public Use
  Company Number: None

PATIENT
  Age: 81 Year
  Sex: Female
  Weight: 63.5036 kg

DRUGS (2)
  1. CISPLATIN [Suspect]
     Indication: ANAL CANCER
     Dosage: 128 MG IV
     Route: 042
     Dates: start: 20041213
  2. FLUOROURACIL [Suspect]
     Indication: ANAL CANCER
     Dosage: 1710 MG /DAY IV
     Route: 042
     Dates: start: 20041213, end: 20041216

REACTIONS (2)
  - NEUTROPHIL COUNT DECREASED [None]
  - WHITE BLOOD CELL COUNT DECREASED [None]
